FAERS Safety Report 6508132-9 (Version None)
Quarter: 2009Q4

REPORT INFORMATION
  Report Type: 
  Country: None (occurrence: None)
  Receive Date: 20091221
  Receipt Date: 20091209
  Transmission Date: 20100525
  Serious: Yes (Other)
  Sender: FDA-Public Use
  Company Number: CA-PURDUE-CAN-2009-0001184

PATIENT
  Sex: Male

DRUGS (7)
  1. OXYCONTIN [Suspect]
     Indication: DRUG USE FOR UNKNOWN INDICATION
  2. PERCOCET [Suspect]
     Indication: DRUG USE FOR UNKNOWN INDICATION
  3. COCAINE [Suspect]
     Indication: DRUG USE FOR UNKNOWN INDICATION
     Route: 042
  4. MARIJUANA [Suspect]
     Indication: DRUG USE FOR UNKNOWN INDICATION
     Route: 055
  5. METHAMPHETAMINE [Suspect]
     Indication: DRUG USE FOR UNKNOWN INDICATION
  6. HEROIN [Suspect]
     Indication: DRUG USE FOR UNKNOWN INDICATION
  7. METHYLENEDIOXYMETHAMPHETAMINE [Suspect]
     Indication: DRUG USE FOR UNKNOWN INDICATION

REACTIONS (3)
  - DRUG DEPENDENCE [None]
  - SUBSTANCE ABUSE [None]
  - SUICIDE ATTEMPT [None]
